FAERS Safety Report 5525417-3 (Version None)
Quarter: 2007Q4

REPORT INFORMATION
  Report Type: 
  Country: None (occurrence: None)
  Receive Date: 20071120
  Receipt Date: 20071109
  Transmission Date: 20080405
  Serious: Yes (Other)
  Sender: FDA-Public Use
  Company Number: 230144J07USA

PATIENT
  Age: 42 Year
  Sex: Female
  Weight: 95.2554 kg

DRUGS (3)
  1. REBIF [Suspect]
     Indication: MULTIPLE SCLEROSIS
     Dosage: 44 MCG, 3 IN 1 WEEKS, SUBCUTANEOUS
     Route: 058
     Dates: start: 20050804
  2. PREDNISONE [Suspect]
     Dosage: 1 IN 4 HR
     Dates: start: 20070601, end: 20070601
  3. WELLBUTRIN [Concomitant]

REACTIONS (4)
  - CATARACT [None]
  - IRITIS [None]
  - RASH ERYTHEMATOUS [None]
  - VITREOUS FLOATERS [None]
